FAERS Safety Report 17852050 (Version 2)
Quarter: 2020Q2

REPORT INFORMATION
  Report Type: Spontaneous
  Country: ES (occurrence: ES)
  Receive Date: 20200602
  Receipt Date: 20200608
  Transmission Date: 20200714
  Serious: Yes (Life-Threatening)
  Sender: FDA-Public Use
  Company Number: ES-PFIZER INC-2020215863

PATIENT
  Age: 20 Day
  Sex: Male
  Weight: 1.6 kg

DRUGS (2)
  1. SPIRONOLACTONE. [Suspect]
     Active Substance: SPIRONOLACTONE
     Dosage: 1.5 MG, 2X/DAY (EACH 12H)
     Route: 048
     Dates: start: 20191024, end: 20191029
  2. HYDROCHLOROTHIAZIDE. [Suspect]
     Active Substance: HYDROCHLOROTHIAZIDE
     Dosage: 1.5 MG, 2X/DAY
     Route: 048
     Dates: start: 20191024, end: 20191029

REACTIONS (1)
  - Neonatal hyponatraemia [Recovered/Resolved]

NARRATIVE: CASE EVENT DATE: 20191026
